FAERS Safety Report 20167010 (Version 1)
Quarter: 2021Q4

REPORT INFORMATION
  Report Type: Other
  Country: FR (occurrence: FR)
  Receive Date: 20211209
  Receipt Date: 20211209
  Transmission Date: 20220303
  Serious: Yes (Life-Threatening, Hospitalization)
  Sender: FDA-Public Use
  Company Number: None

PATIENT

DRUGS (1)
  1. ONCASPAR [Suspect]
     Active Substance: PEGASPARGASE
     Indication: Acute lymphocytic leukaemia
     Dosage: UNK
     Route: 042
     Dates: start: 20200814, end: 20200814

REACTIONS (2)
  - Pancreatitis necrotising [Recovered/Resolved with Sequelae]
  - Pancreatic failure [Not Recovered/Not Resolved]

NARRATIVE: CASE EVENT DATE: 20200826
